FAERS Safety Report 4473558-4 (Version None)
Quarter: 2004Q4

REPORT INFORMATION
  Report Type: 
  Country: None (occurrence: None)
  Receive Date: 20041013
  Receipt Date: 20041005
  Transmission Date: 20050328
  Serious: Yes (Life-Threatening, Hospitalization, Disabling)
  Sender: FDA-Public Use
  Company Number: US-MERCK-0410USA00736

PATIENT
  Age: 53 Year
  Sex: Female

DRUGS (5)
  1. LOTREL [Concomitant]
     Indication: BLOOD PRESSURE
     Route: 065
  2. ASPIRIN [Concomitant]
     Route: 065
  3. FLEXERIL [Concomitant]
     Route: 065
  4. VIOXX [Suspect]
     Indication: PAIN MANAGEMENT
     Route: 048
  5. VIOXX [Suspect]
     Route: 048
     Dates: end: 20040101

REACTIONS (2)
  - CEREBROVASCULAR ACCIDENT [None]
  - MUSCLE SPASMS [None]
